FAERS Safety Report 4110048 (Version 3)
Quarter: 2020Q3

REPORT INFORMATION
  Report Type: Report from Study
  Country: US (occurrence: US)
  Receive Date: 20040312
  Receipt Date: 20050104
  Transmission Date: 20201104
  Serious: Yes (Death, Hospitalization, Other)
  Sender: FDA-Public Use
  Company Number: US-JNJFOC-20040300019

PATIENT
  Age: 65 Year
  Sex: Female
  Weight: 58.06 kg

DRUGS (14)
  1. INFLIXIMAB [Suspect]
     Active Substance: INFLIXIMAB
     Route: 042
  2. PREMPRO [Concomitant]
     Active Substance: ESTROGENS, CONJUGATED\MEDROXYPROGESTERONE ACETATE
  3. INFLIXIMAB [Suspect]
     Active Substance: INFLIXIMAB
     Route: 042
  4. INFLIXIMAB [Suspect]
     Active Substance: INFLIXIMAB
     Route: 042
  5. AVALIDE [Concomitant]
     Active Substance: HYDROCHLOROTHIAZIDE\IRBESARTAN
  6. AMBIEN [Concomitant]
     Active Substance: ZOLPIDEM TARTRATE
  7. KLOR?CON [Concomitant]
     Active Substance: POTASSIUM CHLORIDE
  8. INFLIXIMAB [Suspect]
     Active Substance: INFLIXIMAB
     Route: 042
  9. AMARYL [Concomitant]
     Active Substance: GLIMEPIRIDE
  10. PREMPRO [Concomitant]
     Active Substance: ESTROGENS, CONJUGATED\MEDROXYPROGESTERONE ACETATE
  11. WELLBUTRIN [Concomitant]
     Active Substance: BUPROPION HYDROCHLORIDE
     Indication: DEPRESSION
  12. AVALIDE [Concomitant]
     Active Substance: HYDROCHLOROTHIAZIDE\IRBESARTAN
  13. INFLIXIMAB [Suspect]
     Active Substance: INFLIXIMAB
     Route: 042
  14. INFLIXIMAB [Suspect]
     Active Substance: INFLIXIMAB
     Indication: CROHN^S DISEASE
     Route: 042

REACTIONS (20)
  - Small cell lung cancer metastatic [Fatal]
  - Memory impairment [None]
  - Vomiting [None]
  - Metastases to liver [None]
  - Cough [None]
  - Nausea [None]
  - Headache [None]
  - Metastases to bone [None]
  - Wheezing [None]
  - Hypophagia [None]
  - Hypoaesthesia [None]
  - Asthenia [None]
  - Confusional state [None]
  - Tumour ulceration [None]
  - Thrombocytopenia [None]
  - Feeling abnormal [None]
  - Mouth injury [None]
  - Dysphonia [None]
  - Malnutrition [None]
  - Metastases to spine [None]

NARRATIVE: CASE EVENT DATE: 20040101
